FAERS Safety Report 8092257-3 (Version None)
Quarter: 2012Q1

REPORT INFORMATION
  Report Type: 
  Country: None (occurrence: None)
  Receive Date: 20120129
  Receipt Date: 20111118
  Transmission Date: 20120608
  Serious: No
  Sender: FDA-Public Use
  Company Number: US-ABBOTT-11P-163-0876685-00

PATIENT
  Sex: Male
  Weight: 92.162 kg

DRUGS (7)
  1. PREDNISONE TAB [Concomitant]
     Indication: CROHN'S DISEASE
  2. PROBIOTICS [Concomitant]
     Indication: CROHN'S DISEASE
  3. XANAX [Concomitant]
     Indication: ANXIETY
  4. ADDERALL 5 [Concomitant]
     Indication: ATTENTION DEFICIT/HYPERACTIVITY DISORDER
  5. HUMIRA [Suspect]
     Indication: CROHN'S DISEASE
     Dates: start: 20111029, end: 20111029
  6. ASACOL [Concomitant]
     Indication: CROHN'S DISEASE
  7. IMODIUM [Concomitant]
     Indication: DIARRHOEA

REACTIONS (4)
  - BLISTER [None]
  - PAIN IN EXTREMITY [None]
  - HERPES ZOSTER [None]
  - ERYTHEMA [None]
